FAERS Safety Report 6270908-3 (Version None)
Quarter: 2009Q3

REPORT INFORMATION
  Report Type: 
  Country: None (occurrence: None)
  Receive Date: 20090716
  Receipt Date: 20090716
  Transmission Date: 20100115
  Serious: Yes (Hospitalization)
  Sender: FDA-Public Use
  Company Number: PHHO2008JP12524

PATIENT
  Sex: Female
  Weight: 45 kg

DRUGS (5)
  1. EXELON [Suspect]
     Indication: DEMENTIA ALZHEIMER'S TYPE
     Dosage: 2.5CM2 - 10CM2
     Dates: start: 20080726, end: 20080821
  2. EXELON [Suspect]
     Dosage: LEVEL 2
     Dates: start: 20080822, end: 20080925
  3. EXELON [Suspect]
     Dosage: LEVEL 3
     Dates: start: 20080926, end: 20081016
  4. MECOBALAMIN [Concomitant]
  5. BIO THREE [Concomitant]

REACTIONS (6)
  - BRAIN OEDEMA [None]
  - CEREBRAL AMYLOID ANGIOPATHY [None]
  - CEREBRAL HAEMORRHAGE [None]
  - HEADACHE [None]
  - HEMIANOPIA HOMONYMOUS [None]
  - VASCULAR FRAGILITY [None]
